FAERS Safety Report 15151320 (Version 3)
Quarter: 2018Q3

REPORT INFORMATION
  Report Type: Report from Study
  Country: IL (occurrence: IL)
  Receive Date: 20180716
  Receipt Date: 20180810
  Transmission Date: 20181010
  Serious: Yes (Death, Other)
  Sender: FDA-Public Use
  Company Number: PHHY2018IL036943

PATIENT
  Age: 55 Year
  Sex: Male
  Weight: 80 kg

DRUGS (2)
  1. MEKINIST [Suspect]
     Active Substance: TRAMETINIB DIMETHYL SULFOXIDE
     Indication: NON-SMALL CELL LUNG CANCER METASTATIC
     Dosage: UNK
     Route: 048
     Dates: start: 20171121, end: 20180515
  2. DABRAFENIB [Suspect]
     Active Substance: DABRAFENIB
     Indication: NON-SMALL CELL LUNG CANCER
     Dosage: UNK
     Route: 048
     Dates: start: 20171121, end: 20180515

REACTIONS (3)
  - Non-small cell lung cancer metastatic [Fatal]
  - Malignant neoplasm progression [Fatal]
  - Fatigue [Recovering/Resolving]

NARRATIVE: CASE EVENT DATE: 20171206
